FAERS Safety Report 5255983-7 (Version None)
Quarter: 2007Q1

REPORT INFORMATION
  Report Type: 
  Country: None (occurrence: None)
  Receive Date: 20070302
  Receipt Date: 20070302
  Transmission Date: 20070707
  Serious: Yes (Other)
  Sender: FDA-Public Use
  Company Number: None

PATIENT
  Age: 22 Year
  Sex: Female
  Weight: 56.6996 kg

DRUGS (2)
  1. NEOSPORIN [Suspect]
     Indication: PAIN
     Dates: start: 20070202, end: 20070209
  2. NEOSPORIN [Suspect]
     Indication: SKIN LACERATION
     Dates: start: 20070202, end: 20070209

REACTIONS (5)
  - BLISTER [None]
  - DERMATITIS CONTACT [None]
  - DRUG INTERACTION [None]
  - IMPAIRED HEALING [None]
  - RASH PRURITIC [None]
